FAERS Safety Report 16265371 (Version 3)
Quarter: 2019Q3

REPORT INFORMATION
  Report Type: Spontaneous
  Country: US (occurrence: US)
  Receive Date: 20190502
  Receipt Date: 20190722
  Transmission Date: 20191004
  Serious: No
  Sender: FDA-Public Use
  Company Number: US-PFIZER INC-2019165345

PATIENT
  Age: 51 Year
  Sex: Male

DRUGS (2)
  1. LYRICA CR [Suspect]
     Active Substance: PREGABALIN
     Dosage: 300 MG, 3X/DAY (ONE TABLET EVERY 8 HOURS AND SOMETIMES I TAKE MAYBE TWO IN THE MORNING)
     Route: 048
     Dates: start: 20170101
  2. LYRICA CR [Suspect]
     Active Substance: PREGABALIN
     Indication: NERVE INJURY
     Dosage: 100 MG, UNK

REACTIONS (1)
  - Prescribed overdose [Unknown]

NARRATIVE: CASE EVENT DATE: 20170101
